FAERS Safety Report 16621994 (Version 1)
Quarter: 2019Q3

REPORT INFORMATION
  Report Type: Spontaneous
  Country: US (occurrence: US)
  Receive Date: 20190723
  Receipt Date: 20190723
  Transmission Date: 20191004
  Serious: No
  Sender: FDA-Public Use
  Company Number: US-OTSUKA-2019_002728

PATIENT
  Age: 51 Year
  Sex: Male

DRUGS (3)
  1. INSULIN [Concomitant]
     Active Substance: INSULIN NOS
     Indication: DIABETES MELLITUS
     Dosage: UNK
     Route: 065
  2. REXULTI [Suspect]
     Active Substance: BREXPIPRAZOLE
     Indication: DEPRESSION
     Dosage: 0.5 MG, QD
     Route: 048
     Dates: start: 2019, end: 2019
  3. REMERON [Suspect]
     Active Substance: MIRTAZAPINE
     Indication: DEPRESSION
     Dosage: UNK
     Route: 065

REACTIONS (6)
  - Muscle twitching [Unknown]
  - Muscle rigidity [Unknown]
  - Depressed mood [Unknown]
  - Therapy cessation [Unknown]
  - Blood glucose increased [Unknown]
  - Anxiety [Unknown]
